FAERS Safety Report 9443033 (Version 3)
Quarter: 2013Q4

REPORT INFORMATION
  Report Type: Report from Study
  Country: US (occurrence: US)
  Receive Date: 20130806
  Receipt Date: 20131003
  Transmission Date: 20140711
  Serious: Yes (Hospitalization)
  Sender: FDA-Public Use
  Company Number: PHEH2013US016347

PATIENT
  Age: 80 Year
  Sex: Female

DRUGS (13)
  1. TASIGNA [Suspect]
     Indication: NEOPLASM
     Dosage: 200 MG, BID
     Route: 048
     Dates: start: 20111008
  2. TASIGNA [Suspect]
     Dosage: 200 MG, QD
     Route: 048
  3. MARINOL [Concomitant]
  4. CELEBREX [Concomitant]
  5. DEXILANT [Concomitant]
  6. ATENOLOL [Concomitant]
  7. TRAMADOL [Concomitant]
  8. HYDROCHOROTHIAZIDE [Concomitant]
  9. TRAIM [Concomitant]
  10. CITALOPRAM [Concomitant]
  11. ALLOPURINOL [Concomitant]
  12. IRON [Concomitant]
  13. TEMAZEPAM [Concomitant]

REACTIONS (3)
  - Urinary tract infection [Recovered/Resolved]
  - White blood cell count decreased [Recovered/Resolved]
  - Headache [Unknown]
